FAERS Safety Report 9787304 (Version 4)
Quarter: 2014Q2

REPORT INFORMATION
  Report Type: Report from Study
  Country: US (occurrence: US)
  Receive Date: 20131230
  Receipt Date: 20140505
  Transmission Date: 20141212
  Serious: Yes (Other)
  Sender: FDA-Public Use
  Company Number: US-ROCHE-1322317

PATIENT
  Sex: Male

DRUGS (6)
  1. XOLAIR [Suspect]
     Indication: URTICARIA
     Route: 065
  2. XOLAIR [Suspect]
     Route: 058
     Dates: start: 20090306
  3. CLARITIN [Concomitant]
     Indication: RHINITIS ALLERGIC
     Dosage: BEDTIME
     Route: 048
  4. SERTRALINE HYDROCHLORIDE [Concomitant]
     Indication: DEPRESSION
     Dosage: 1 TABLET IN MORNING WITH FOOD
     Route: 048
  5. EPIPEN 2-PAK [Concomitant]
     Indication: FOOD ALLERGY
     Dosage: 0.3MG/0.3ML INJECTION DEVICE IN LATERAL THIGH
     Route: 065
  6. ACIDOPHILUS [Concomitant]
     Indication: ABDOMINAL PAIN
     Route: 048

REACTIONS (20)
  - Chest pain [Unknown]
  - Dyspnoea [Unknown]
  - Vocal cord disorder [Unknown]
  - Insomnia [Unknown]
  - Nausea [Unknown]
  - Diarrhoea [Unknown]
  - Headache [Unknown]
  - Xerosis [Unknown]
  - Nasal congestion [Unknown]
  - Fatigue [Unknown]
  - Depression [Unknown]
  - Sleep disorder [Unknown]
  - Infectious mononucleosis [Unknown]
  - Gastrointestinal disorder [Unknown]
  - Conjunctivitis allergic [Unknown]
  - Rhinitis allergic [Unknown]
  - Nasal mucosal disorder [Unknown]
  - Gastrointestinal disorder [Unknown]
  - Food intolerance [Unknown]
  - Off label use [Unknown]
